FAERS Safety Report 6504029-9 (Version None)
Quarter: 2009Q4

REPORT INFORMATION
  Report Type: 
  Country: None (occurrence: None)
  Receive Date: 20091215
  Receipt Date: 20091113
  Transmission Date: 20100525
  Serious: No
  Sender: FDA-Public Use
  Company Number: SPV1-2009-02298

PATIENT
  Age: 11 Year
  Sex: Male
  Weight: 49.5 kg

DRUGS (2)
  1. EQUASYM XL (METHYLPHENIDATE HYDROCHLORIDE) CAPSULE [Suspect]
     Indication: ATTENTION DEFICIT/HYPERACTIVITY DISORDER
     Dosage: 40 MG, ORAL
     Route: 048
     Dates: start: 20090902, end: 20090101
  2. VALPROATE SODIUM [Concomitant]

REACTIONS (2)
  - ABNORMAL BEHAVIOUR [None]
  - CONFUSIONAL STATE [None]
